FAERS Safety Report 8437939-6 (Version None)
Quarter: 2012Q2

REPORT INFORMATION
  Report Type: 
  Country: None (occurrence: None)
  Receive Date: 20120614
  Receipt Date: 20120523
  Transmission Date: 20120825
  Serious: No
  Sender: FDA-Public Use
  Company Number: US-AMGEN-USASP2012028966

PATIENT
  Age: 65 Year
  Sex: Female
  Weight: 66.939 kg

DRUGS (9)
  1. PROLIA [Suspect]
     Indication: OSTEOPOROSIS POSTMENOPAUSAL
     Dosage: 60 MG, Q6MO
     Route: 058
     Dates: start: 20110823
  2. FLONASE [Concomitant]
  3. CALTRATE                           /00751519/ [Concomitant]
     Dosage: 600 MG, BID
     Route: 048
     Dates: start: 20080124
  4. FERROUS GLUCONATE [Concomitant]
  5. ASPIRIN [Concomitant]
     Dosage: 81 MG, QD
     Route: 048
     Dates: start: 20110901
  6. VITAMIN D                          /00318501/ [Concomitant]
  7. MOBIC [Concomitant]
     Dosage: 15 MG, QD
     Route: 048
     Dates: start: 20120416
  8. LEXAPRO [Concomitant]
     Dosage: 10 MG, QD
     Route: 048
     Dates: start: 20120229
  9. ZYRTEC [Concomitant]
     Dosage: UNK
     Route: 048
     Dates: start: 20120416

REACTIONS (3)
  - INJECTION SITE PRURITUS [None]
  - ARTHRALGIA [None]
  - BONE PAIN [None]
